FAERS Safety Report 8113656-7 (Version None)
Quarter: 2011Q4

REPORT INFORMATION
  Report Type: 
  Country: None (occurrence: None)
  Receive Date: 20111227
  Receipt Date: 20110830
  Transmission Date: 20120403
  Serious: Yes (Hospitalization)
  Sender: FDA-Public Use
  Company Number: PHEH2011US03160

PATIENT
  Age: 50 Year
  Sex: Female

DRUGS (2)
  1. DEPAKOTE [Concomitant]
  2. GILENYA [Suspect]
     Dosage: 0.5 MG, DAILY, ORAL
     Route: 048

REACTIONS (1)
  - DEPRESSION [None]
